FAERS Safety Report 16427631 (Version 11)
Quarter: 2024Q4

REPORT INFORMATION
  Report Type: Report from Study
  Country: JP (occurrence: JP)
  Receive Date: 20190613
  Receipt Date: 20241105
  Transmission Date: 20250115
  Serious: Yes (Hospitalization, Disabling, Other)
  Sender: ABBVIE
  Company Number: JP-TAKEDA-2019TJP010119

PATIENT
  Age: 76 Year
  Sex: Male
  Weight: 53.2 kg

DRUGS (15)
  1. LEUPROLIDE ACETATE [Suspect]
     Active Substance: LEUPROLIDE ACETATE
     Indication: Bulbospinal muscular atrophy congenital
     Dosage: 11.25 MILLIGRAM, Q3MONTHS
     Route: 058
     Dates: start: 20171122, end: 20191218
  2. BELSOMRA [Concomitant]
     Active Substance: SUVOREXANT
     Indication: Prophylaxis
     Dosage: 15 MILLIGRAM
     Route: 065
     Dates: start: 20201117
  3. PREDONINE [Suspect]
     Active Substance: PREDNISOLONE
     Indication: Product used for unknown indication
     Route: 065
  4. DISTIGMINE BROMIDE [Concomitant]
     Active Substance: DISTIGMINE BROMIDE
     Indication: Dysuria
     Dosage: 2.5 MILLIGRAM
     Route: 065
     Dates: start: 20181115, end: 20181205
  5. CARBOCYSTEINE [Concomitant]
     Active Substance: CARBOCYSTEINE
     Indication: Bronchitis chronic
     Dosage: 1500 MILLIGRAM
     Route: 065
     Dates: end: 20201102
  6. BIO-THREE [Concomitant]
     Active Substance: HERBALS
     Indication: Product used for unknown indication
     Dosage: 3 DOSAGE FORM
     Route: 065
  7. LANSOPRAZOLE [Concomitant]
     Active Substance: LANSOPRAZOLE
     Indication: Product used for unknown indication
     Dosage: 15 MILLIGRAM
     Route: 065
  8. METHYLCOBALAMIN [Concomitant]
     Active Substance: METHYLCOBALAMIN
     Indication: Peroneal nerve palsy
     Dosage: 1500 MICROGRAM
     Route: 065
     Dates: end: 20200114
  9. SULFAMETHOXAZOLE\TRIMETHOPRIM [Concomitant]
     Active Substance: SULFAMETHOXAZOLE\TRIMETHOPRIM
     Indication: Product used for unknown indication
     Dosage: 1 DOSAGE FORM
     Route: 065
  10. BROTIZOLAM [Concomitant]
     Active Substance: BROTIZOLAM
     Indication: Insomnia
     Dosage: 0.25 MILLIGRAM
     Route: 065
     Dates: end: 20201102
  11. CALONAL [Concomitant]
     Active Substance: ACETAMINOPHEN
     Indication: Incision site pain
     Dosage: 500 MILLIGRAM
     Route: 065
     Dates: end: 20200114
  12. HERBALS [Concomitant]
     Active Substance: HERBALS
     Indication: Bulbospinal muscular atrophy congenital
     Dosage: 7.5 GRAM
     Route: 065
     Dates: end: 20201102
  13. HERBALS [Concomitant]
     Active Substance: HERBALS
     Indication: Neurosis
     Dosage: 7.5 GRAM
     Route: 065
     Dates: start: 20180207, end: 20201102
  14. ZOLPIDEM TARTRATE [Concomitant]
     Active Substance: ZOLPIDEM TARTRATE
     Indication: Insomnia
     Dosage: 5 MILLIGRAM
     Route: 065
     Dates: end: 20201102
  15. CEFDINIR [Concomitant]
     Active Substance: CEFDINIR
     Indication: Otitis media
     Dosage: 300 MILLIGRAM
     Route: 065
     Dates: start: 20181121, end: 20181126

REACTIONS (10)
  - Muscular weakness [Not Recovered/Not Resolved]
  - Respiratory disorder [Not Recovered/Not Resolved]
  - Hepatic function abnormal [Recovered/Resolved]
  - Respiratory disorder [Not Recovered/Not Resolved]
  - Aphasia [Not Recovered/Not Resolved]
  - Cushingoid [Not Recovered/Not Resolved]
  - Weight increased [Recovered/Resolved]
  - Depression [Recovering/Resolving]
  - Constipation [Recovering/Resolving]
  - Insomnia [Recovering/Resolving]

NARRATIVE: CASE EVENT DATE: 20171211
